FAERS Safety Report 8808096 (Version 2)
Quarter: 2015Q1

REPORT INFORMATION
  Report Type: Report from Study
  Country: US (occurrence: US)
  Receive Date: 20120925
  Receipt Date: 20150323
  Transmission Date: 20150721
  Serious: Yes (Death)
  Sender: FDA-Public Use
  Company Number: US-ROCHE-1123792

PATIENT
  Sex: Female
  Weight: 93.07 kg

DRUGS (7)
  1. XELODA [Concomitant]
     Active Substance: CAPECITABINE
     Route: 065
  2. CPT-11 [Concomitant]
     Active Substance: IRINOTECAN
     Route: 042
  3. KYTRIL [Concomitant]
     Active Substance: GRANISETRON HYDROCHLORIDE
     Route: 065
  4. AVASTIN [Suspect]
     Active Substance: BEVACIZUMAB
     Indication: APPENDIX CANCER
     Route: 042
  5. DECADRON [Concomitant]
     Active Substance: DEXAMETHASONE
     Route: 042
  6. ATROPINE [Concomitant]
     Active Substance: ATROPINE
     Route: 042
  7. DILAUDID [Concomitant]
     Active Substance: HYDROMORPHONE HYDROCHLORIDE
     Route: 042

REACTIONS (16)
  - Nausea [Unknown]
  - Constipation [Unknown]
  - Appetite disorder [Unknown]
  - Hot flush [Unknown]
  - Urinary tract infection [Unknown]
  - Death [Fatal]
  - Vomiting [Unknown]
  - Fatigue [Unknown]
  - Asthma [Unknown]
  - Stomatitis [Unknown]
  - Abdominal pain upper [Unknown]
  - Pain [Unknown]
  - Pyrexia [Unknown]
  - Diarrhoea [Unknown]
  - Insomnia [Unknown]
  - Chills [Unknown]
